FAERS Safety Report 6782172-7 (Version None)
Quarter: 2010Q2

REPORT INFORMATION
  Report Type: 
  Country: None (occurrence: None)
  Receive Date: 20100618
  Receipt Date: 20100618
  Transmission Date: 20101027
  Serious: Yes (Hospitalization)
  Sender: FDA-Public Use
  Company Number: None

PATIENT
  Sex: Male
  Weight: 70 kg

DRUGS (6)
  1. CYCLOPHOSPHAMIDE [Suspect]
     Dosage: 1417.5 MG
  2. DOXORUBICIN HCL [Suspect]
     Dosage: 18.9 MG
  3. ETOPOSIDE [Suspect]
     Dosage: 94.5 MG
  4. PREDNISONE [Suspect]
     Dosage: 232.8 MG
  5. RITUXIMAB (MOAB C2B8 ANTI CD20, CHIMERIC) [Suspect]
     Dosage: 708.75 MG
  6. VINCRISTINE SULFATE [Suspect]
     Dosage: .75 MG

REACTIONS (4)
  - BACTERIAL INFECTION [None]
  - BLOOD CULTURE POSITIVE [None]
  - NAUSEA [None]
  - SEPSIS [None]
